FAERS Safety Report 17143458 (Version 2)
Quarter: 2019Q4

REPORT INFORMATION
  Report Type: Spontaneous
  Country: FR (occurrence: FR)
  Receive Date: 20191212
  Receipt Date: 20191220
  Transmission Date: 20200122
  Serious: Yes (Hospitalization)
  Sender: FDA-Public Use
  Company Number: FR-MYLANLABS-2019M1120452

PATIENT
  Age: 56 Year
  Sex: Male
  Weight: 67 kg

DRUGS (2)
  1. PIPERACILLIN,TAZOBACTAM MYLAN [Suspect]
     Active Substance: PIPERACILLIN SODIUM\TAZOBACTAM SODIUM
     Indication: INFECTION
     Dosage: 12 GRAM, QD
     Route: 042
     Dates: start: 20190705, end: 20190709
  2. LINEZOLIDE KABI [Suspect]
     Active Substance: LINEZOLID
     Indication: INFECTION
     Dosage: 600 MILLIGRAM, QD
     Route: 042
     Dates: start: 20190705, end: 20190709

REACTIONS (2)
  - Vascular purpura [Not Recovered/Not Resolved]
  - Eosinophil count increased [Recovered/Resolved]

NARRATIVE: CASE EVENT DATE: 20190708
